FAERS Safety Report 21230616 (Version 1)
Quarter: 2022Q3

REPORT INFORMATION
  Report Type: Spontaneous
  Country: US (occurrence: US)
  Receive Date: 20220818
  Receipt Date: 20220818
  Transmission Date: 20221027
  Serious: Yes (Other)
  Sender: FDA-Public Use
  Company Number: US-SA-SAC20220812001949

PATIENT
  Age: 64 Year
  Sex: Female

DRUGS (7)
  1. KEVZARA [Suspect]
     Active Substance: SARILUMAB
     Indication: Rheumatoid arthritis
     Dosage: 200 MG, QOW
     Route: 058
  2. VITAMIN D3 [Concomitant]
     Active Substance: CHOLECALCIFEROL
  3. GABAPENTIN [Concomitant]
     Active Substance: GABAPENTIN
  4. METHOTREXATE [Concomitant]
     Active Substance: METHOTREXATE
  5. IBUPROFEN [Concomitant]
     Active Substance: IBUPROFEN
     Dosage: 20MG
  6. VITAMINS NOS [Concomitant]
     Active Substance: VITAMINS
  7. ADDERALL [Concomitant]
     Active Substance: AMPHETAMINE ASPARTATE\AMPHETAMINE SULFATE\DEXTROAMPHETAMINE SACCHARATE\DEXTROAMPHETAMINE SULFATE

REACTIONS (2)
  - Rheumatoid arthritis [Unknown]
  - Product dose omission issue [Unknown]
